FAERS Safety Report 4446348-6 (Version None)
Quarter: 2004Q3

REPORT INFORMATION
  Report Type: 
  Country: None (occurrence: None)
  Receive Date: 20040902
  Receipt Date: 20040818
  Transmission Date: 20050211
  Serious: Yes (Other)
  Sender: FDA-Public Use
  Company Number: 2004-0007371

PATIENT
  Age: 32 Year
  Sex: Male

DRUGS (6)
  1. VIREAD [Suspect]
     Indication: HIV INFECTION
     Dosage: 300 MG, ORAL
     Route: 048
     Dates: start: 20040403
  2. REYATAZ [Suspect]
     Indication: HIV INFECTION
     Dates: start: 20040403, end: 20040407
  3. NORVIR [Suspect]
     Indication: HIV INFECTION
     Dates: start: 20040403
  4. OPIPRAMOL (OPIPRAMOL) [Suspect]
  5. CARBAMAZEPINE [Concomitant]
  6. CITALOPRAM [Concomitant]

REACTIONS (4)
  - ASTHENIA [None]
  - DRUG INTERACTION [None]
  - IMPULSE-CONTROL DISORDER [None]
  - OVERDOSE [None]
